FAERS Safety Report 10551106 (Version 1)
Quarter: 2014Q4

REPORT INFORMATION
  Report Type: Spontaneous
  Country: US (occurrence: None)
  Receive Date: 20141028
  Receipt Date: 20141028
  Transmission Date: 20150529
  Serious: No
  Sender: FDA-Public Use
  Company Number: None

PATIENT
  Age: 46 Year
  Sex: Female
  Weight: 83.46 kg

DRUGS (1)
  1. NALOXONE [Suspect]
     Active Substance: NALOXONE
     Indication: DRUG DEPENDENCE
     Dosage: TAKEN UNDER THE TONGUE
     Route: 060
     Dates: start: 20140312, end: 20141027

REACTIONS (4)
  - Peripheral swelling [None]
  - Paraesthesia oral [None]
  - Swelling face [None]
  - Visual impairment [None]

NARRATIVE: CASE EVENT DATE: 20141027
